FAERS Safety Report 8198127-4 (Version None)
Quarter: 2012Q1

REPORT INFORMATION
  Report Type: 
  Country: None (occurrence: None)
  Receive Date: 20120309
  Receipt Date: 20120224
  Transmission Date: 20120608
  Serious: Yes (Hospitalization)
  Sender: FDA-Public Use
  Company Number: NL-WATSON-2012-01445

PATIENT
  Age: 86 Year
  Sex: Female

DRUGS (2)
  1. HYDROCHLOROTHIAZIDE [Suspect]
     Indication: HYPERTENSION
     Dosage: UNK
  2. DESMOPRESSIN ACETATE [Suspect]
     Indication: NOCTURIA
     Dosage: X2 WEEKS PRIOR TO HOSPITALIZATION
     Route: 065

REACTIONS (4)
  - HYPONATRAEMIA [None]
  - SLOW RESPONSE TO STIMULI [None]
  - SPEECH DISORDER [None]
  - APRAXIA [None]
